FAERS Safety Report 8364405-9 (Version None)
Quarter: 2012Q2

REPORT INFORMATION
  Report Type: 
  Country: None (occurrence: None)
  Receive Date: 20120516
  Receipt Date: 20120509
  Transmission Date: 20120825
  Serious: Yes (Hospitalization)
  Sender: FDA-Public Use
  Company Number: US-BAYER-2011-122898

PATIENT
  Age: 27 Year
  Sex: Female
  Weight: 104 kg

DRUGS (9)
  1. MOTRIN [Concomitant]
     Dosage: 400 MG, Q4HR
     Dates: start: 20090108
  2. YASMIN [Suspect]
     Indication: PREMENSTRUAL SYNDROME
  3. YASMIN [Suspect]
     Indication: CONTRACEPTION
     Dosage: UNK
     Dates: start: 20081201, end: 20090101
  4. DROSPIRENONE AND ETHINYL ESTRADIOL [Suspect]
     Indication: CONTRACEPTION
     Dosage: UNK
     Dates: start: 20081201, end: 20090101
  5. HYDROCODONE BITARTRATE + ACETAMINOPHEN [Concomitant]
     Dosage: 500 MG, UNK
     Route: 048
     Dates: start: 20081206
  6. DROSPIRENONE AND ETHINYL ESTRADIOL [Suspect]
     Indication: PREMENSTRUAL SYNDROME
  7. FLEXERIL [Concomitant]
     Dosage: 5 MG, PRN
     Dates: start: 20090108
  8. METRONIDAZOLE [Concomitant]
     Dosage: 500 MG, UNK
     Route: 048
     Dates: start: 20081206
  9. IBUPROFEN [Concomitant]
     Dosage: 800 MG, UNK
     Dates: start: 20090114

REACTIONS (6)
  - GENERAL PHYSICAL HEALTH DETERIORATION [None]
  - INJURY [None]
  - ANXIETY [None]
  - PAIN [None]
  - EMOTIONAL DISTRESS [None]
  - PULMONARY EMBOLISM [None]
